FAERS Safety Report 22039355 (Version 6)
Quarter: 2023Q1

REPORT INFORMATION
  Report Type: Report from Study
  Country: AU (occurrence: AU)
  Receive Date: 20230227
  Receipt Date: 20230316
  Transmission Date: 20230418
  Serious: Yes (Hospitalization)
  Sender: FDA-Public Use
  Company Number: AU-GLAXOSMITHKLINE-AU2023GSK028717

PATIENT

DRUGS (25)
  1. BELANTAMAB MAFODOTIN [Suspect]
     Active Substance: BELANTAMAB MAFODOTIN
     Indication: Plasma cell myeloma refractory
     Dosage: 242.8 MG, CYC, (Q4W, 2.50 MG/KG)
     Route: 042
     Dates: start: 20220524, end: 20220524
  2. BELANTAMAB MAFODOTIN [Suspect]
     Active Substance: BELANTAMAB MAFODOTIN
     Dosage: 184.5 MG, CYC
     Route: 042
     Dates: start: 20221011
  3. POMALIDOMIDE [Suspect]
     Active Substance: POMALIDOMIDE
     Indication: Plasma cell myeloma refractory
     Dosage: 4 MG, CYC
     Route: 048
     Dates: start: 20220524, end: 20220602
  4. POMALIDOMIDE [Suspect]
     Active Substance: POMALIDOMIDE
     Dosage: 4 MG, CYC
     Route: 048
     Dates: start: 20220609, end: 20220613
  5. POMALIDOMIDE [Suspect]
     Active Substance: POMALIDOMIDE
     Dosage: 4 MG, CYC
     Route: 048
     Dates: start: 20220621, end: 20220711
  6. POMALIDOMIDE [Suspect]
     Active Substance: POMALIDOMIDE
     Dosage: 4 MG, CYC
     Route: 048
     Dates: start: 20220816, end: 20220905
  7. POMALIDOMIDE [Suspect]
     Active Substance: POMALIDOMIDE
     Dosage: 4 MG, CYC
     Route: 048
     Dates: start: 20221011, end: 20221031
  8. POMALIDOMIDE [Suspect]
     Active Substance: POMALIDOMIDE
     Dosage: 4 MG, CYC
     Route: 048
     Dates: start: 20230106
  9. DEXAMETHASONE [Suspect]
     Active Substance: DEXAMETHASONE
     Indication: Plasma cell myeloma refractory
     Dosage: 40 MG, CYC
     Route: 048
     Dates: start: 20220524, end: 20220621
  10. DEXAMETHASONE [Suspect]
     Active Substance: DEXAMETHASONE
     Dosage: 20 MG, CYC
     Route: 048
     Dates: start: 20220628, end: 20221101
  11. DEXAMETHASONE [Suspect]
     Active Substance: DEXAMETHASONE
     Dosage: 12 MG, CYC
     Route: 048
     Dates: start: 20230106
  12. DEXAMETHASONE [Suspect]
     Active Substance: DEXAMETHASONE
     Dosage: 8 MG, CYC
     Route: 048
     Dates: start: 20230210
  13. LEVOTHYROXINE [Concomitant]
     Active Substance: LEVOTHYROXINE
     Indication: Hypothyroidism
     Dosage: 100 UG, BID
     Route: 048
     Dates: start: 2009
  14. MIRTAZAPINE [Concomitant]
     Active Substance: MIRTAZAPINE
     Indication: Depression
     Dosage: 30 MG, QD
     Route: 048
     Dates: start: 2012
  15. PANTOPRAZOLE [Concomitant]
     Active Substance: PANTOPRAZOLE
     Indication: Gastrooesophageal reflux prophylaxis
     Dosage: 40 MG, QD
     Route: 048
     Dates: start: 202102
  16. SULFAMETHOXAZOLE\TRIMETHOPRIM [Concomitant]
     Active Substance: SULFAMETHOXAZOLE\TRIMETHOPRIM
     Indication: Antibiotic prophylaxis
     Dosage: 960 MG, THREE TIMES PER WEEK
     Route: 048
     Dates: start: 202102
  17. VALACYCLOVIR HYDROCHLORIDE [Concomitant]
     Active Substance: VALACYCLOVIR HYDROCHLORIDE
     Indication: Antiviral prophylaxis
     Dosage: 500 MG, QD
     Route: 048
     Dates: start: 202102
  18. ASPIRIN [Concomitant]
     Active Substance: ASPIRIN
     Indication: Thrombosis prophylaxis
     Dosage: 100 MG, QD
     Route: 048
     Dates: start: 20220524
  19. ZOLEDRONIC ACID [Concomitant]
     Active Substance: ZOLEDRONIC ACID
     Indication: Bone disorder
     Dosage: 4 MG, QM
     Route: 042
     Dates: start: 202102
  20. GRANULOCYTE COLONY-STIMULATING FACTOR NOS [Concomitant]
     Active Substance: GRANULOCYTE COLONY-STIMULATING FACTOR NOS
     Indication: Neutropenia
     Dosage: 300 UG, WE
     Route: 058
     Dates: start: 20220713
  21. DIPHTHERIA TETANUS PERTUSSIS POLIOMYELITIS VACCINE [Concomitant]
     Indication: Prophylaxis
     Dosage: 0.5 ML, SINGLE
     Route: 030
     Dates: start: 20221115, end: 20221115
  22. HEMOPHILUS INFLUENZAE B [Concomitant]
     Indication: Prophylaxis
     Dosage: 0.5 ML, SINGLE
     Route: 030
     Dates: start: 20221115, end: 20221115
  23. PNEUMOCOCCAL VACCINE (PCV 13) [Concomitant]
     Indication: Antibiotic prophylaxis
     Dosage: 0.5 ML, SINGLE
     Route: 030
     Dates: start: 20221115, end: 20221115
  24. HEPATITIS B VIRUS VACCINE [Concomitant]
     Active Substance: HEPATITIS B VIRUS VACCINE
     Indication: Antiviral prophylaxis
     Dosage: 40 UG, SINGLE
     Route: 030
     Dates: start: 20221115, end: 20221115
  25. SHINGRIX (VARICELLA ZOSTER VACCINE) [Concomitant]
     Indication: Prophylaxis
     Dosage: 0.5 ML, SINGLE
     Route: 030
     Dates: start: 20221115, end: 20221115

REACTIONS (2)
  - Pyrexia [Recovered/Resolved]
  - Oral candidiasis [Recovered/Resolved]

NARRATIVE: CASE EVENT DATE: 20230217
